FAERS Safety Report 19738770 (Version 1)
Quarter: 2021Q3

REPORT INFORMATION
  Report Type: Spontaneous
  Country: US (occurrence: US)
  Receive Date: 20210824
  Receipt Date: 20210824
  Transmission Date: 20211014
  Serious: No
  Sender: FDA-Public Use
  Company Number: US-ASTELLAS-2021US003078

PATIENT
  Age: 19 Year
  Sex: Female

DRUGS (1)
  1. AMBISOME [Suspect]
     Active Substance: AMPHOTERICIN B
     Indication: ASPERGILLUS INFECTION
     Dosage: UNK UNK, BID EVERY 3 WEEKS
     Route: 055
     Dates: start: 2018

REACTIONS (4)
  - Pharyngeal erythema [Recovered/Resolved]
  - Off label use [Unknown]
  - Throat irritation [Recovered/Resolved]
  - Incorrect route of product administration [Unknown]
